FAERS Safety Report 5857337-9 (Version None)
Quarter: 2008Q3

REPORT INFORMATION
  Report Type: 
  Country: None (occurrence: None)
  Receive Date: 20080826
  Receipt Date: 20080818
  Transmission Date: 20090109
  Serious: Yes (Death, Hospitalization)
  Sender: FDA-Public Use
  Company Number: SE-TEVA-176041ISR

PATIENT
  Sex: Male

DRUGS (3)
  1. METHOTREXATE SODIUM TABLETS, 2.5 MG [Suspect]
     Indication: BIPOLAR I DISORDER
     Route: 048
     Dates: end: 20080121
  2. FLUOXETINE [Suspect]
     Route: 048
     Dates: end: 20080201
  3. LITHIUM SULFATE [Concomitant]
     Route: 048

REACTIONS (19)
  - ACUTE MYOCARDIAL INFARCTION [None]
  - ARTERIOSCLEROSIS [None]
  - ASCITES [None]
  - ASPIRATION [None]
  - C-REACTIVE PROTEIN INCREASED [None]
  - CARDIOMEGALY [None]
  - GASTRIC ULCER HAEMORRHAGE [None]
  - GENERAL PHYSICAL HEALTH DETERIORATION [None]
  - HAEMATEMESIS [None]
  - HEPATOTOXICITY [None]
  - HYDROTHORAX [None]
  - INTERNATIONAL NORMALISED RATIO INCREASED [None]
  - LIVER DISORDER [None]
  - OCCULT BLOOD POSITIVE [None]
  - PULMONARY OEDEMA [None]
  - RESPIRATORY ARREST [None]
  - SHOCK [None]
  - WEIGHT INCREASED [None]
  - WHITE BLOOD CELL COUNT INCREASED [None]
